FAERS Safety Report 20083572 (Version 1)
Quarter: 2021Q4

REPORT INFORMATION
  Report Type: Spontaneous
  Country: CN (occurrence: None)
  Receive Date: 20211118
  Receipt Date: 20211118
  Transmission Date: 20220303
  Serious: Yes (Other)
  Sender: FDA-Public Use
  Company Number: CN-ROCHE-2954091

PATIENT
  Age: 57 Year
  Sex: Male
  Weight: 58 kg

DRUGS (2)
  1. XELODA [Suspect]
     Active Substance: CAPECITABINE
     Indication: Cardiac neoplasm malignant
     Route: 048
     Dates: start: 20210912, end: 20210926
  2. OXALIPLATIN [Suspect]
     Active Substance: OXALIPLATIN
     Indication: Cardiac neoplasm malignant
     Route: 041
     Dates: start: 20210912, end: 20210912

REACTIONS (2)
  - Drug-induced liver injury [Recovering/Resolving]
  - Off label use [Unknown]

NARRATIVE: CASE EVENT DATE: 20211002
